FAERS Safety Report 5702413-4 (Version None)
Quarter: 2008Q2

REPORT INFORMATION
  Report Type: 
  Country: None (occurrence: None)
  Receive Date: 20080410
  Receipt Date: 20080407
  Transmission Date: 20081010
  Serious: No
  Sender: FDA-Public Use
  Company Number: APP200800230

PATIENT
  Age: 23 Year
  Sex: Male
  Weight: 29.9 kg

DRUGS (6)
  1. HEPARIN SODIUM [Suspect]
     Indication: HAEMODIALYSIS
     Dosage: 1500 USP UNITS, ONCE, HEMODIALYSIS
     Dates: start: 20080201, end: 20080201
  2. DDAVP [Suspect]
     Indication: DRUG USE FOR UNKNOWN INDICATION
  3. ONDANSETRON HCL [Concomitant]
  4. PARICALCITOL (PARICALCITOL) [Concomitant]
  5. PANTOPRAZOLE SODIUM [Concomitant]
  6. SODIUM CHLORIDE [Concomitant]

REACTIONS (1)
  - DRUG HYPERSENSITIVITY [None]
